FAERS Safety Report 21032900 (Version 1)
Quarter: 2022Q3

REPORT INFORMATION
  Report Type: Report from Study
  Country: JP (occurrence: JP)
  Receive Date: 20220701
  Receipt Date: 20220701
  Transmission Date: 20221027
  Serious: Yes (Death)
  Sender: FDA-Public Use
  Company Number: JP-MYLANLABS-2021M1020827

PATIENT
  Age: 82 Year
  Sex: Male

DRUGS (2)
  1. CARBOPLATIN [Suspect]
     Active Substance: CARBOPLATIN
     Indication: Non-small cell lung cancer stage III
     Dosage: LOW-DOSE, AUC 2 MG/ML/MIN FOR 60 MINUTES ON DAYS 1, 8, 15, 22, 29 AND 36 FOR SIX WEEKS
     Route: 042
  2. PACLITAXEL [Suspect]
     Active Substance: PACLITAXEL
     Indication: Non-small cell lung cancer stage III
     Dosage: FOR 60 MINUTES ON DAYS 1, 8, 15, 22, 29 AND 36 FOR SIX WEEKS
     Route: 042

REACTIONS (1)
  - Pneumonitis [Fatal]
